FAERS Safety Report 17108815 (Version 1)
Quarter: 2019Q4

REPORT INFORMATION
  Report Type: Spontaneous
  Country: FR (occurrence: FR)
  Receive Date: 20191203
  Receipt Date: 20191203
  Transmission Date: 20200122
  Serious: Yes (Hospitalization)
  Sender: FDA-Public Use
  Company Number: FR-ETHYPHARM-201902481

PATIENT
  Age: 1 Day
  Sex: Male

DRUGS (2)
  1. TABAC (POUDRE DE) [Suspect]
     Active Substance: TOBACCO LEAF
     Indication: TOBACCO USER
     Dosage: 5 CIGARETTES/JOUR
     Route: 055
     Dates: start: 201901, end: 20190906
  2. BUPRENORPHINE. [Suspect]
     Active Substance: BUPRENORPHINE
     Indication: PRODUCT USED FOR UNKNOWN INDICATION
     Route: 064
     Dates: start: 201901, end: 20190906

REACTIONS (4)
  - Foetal growth restriction [Recovered/Resolved]
  - Withdrawal syndrome [Recovered/Resolved]
  - Exposure during pregnancy [Recovered/Resolved]
  - Low birth weight baby [Recovering/Resolving]

NARRATIVE: CASE EVENT DATE: 201901
